FAERS Safety Report 25666901 (Version 1)
Quarter: 2025Q3

REPORT INFORMATION
  Report Type: Spontaneous
  Country: US (occurrence: US)
  Receive Date: 20250811
  Receipt Date: 20250811
  Transmission Date: 20251021
  Serious: No
  Sender: SANOFI AVENTIS
  Company Number: US-SA-2025SA134593

PATIENT
  Age: 79 Year
  Sex: Male

DRUGS (13)
  1. DUPIXENT [Suspect]
     Active Substance: DUPILUMAB
     Indication: Nasal polyps
     Route: 058
     Dates: start: 20210210
  2. ATORVASTATIN;CLOPIDOGREL [Concomitant]
  3. NASACORT [Concomitant]
     Active Substance: TRIAMCINOLONE ACETONIDE
  4. ASTEPRO [Concomitant]
     Active Substance: AZELASTINE HYDROCHLORIDE
  5. KETOCONAZOLE [Concomitant]
     Active Substance: KETOCONAZOLE
  6. VICTOZA [Concomitant]
     Active Substance: LIRAGLUTIDE
  7. LOSARTAN [Concomitant]
     Active Substance: LOSARTAN
  8. ESCITALOPRAM [Concomitant]
     Active Substance: ESCITALOPRAM OXALATE
  9. METFORMIN [Concomitant]
     Active Substance: METFORMIN HYDROCHLORIDE
  10. TESTOSTERONE [Concomitant]
     Active Substance: TESTOSTERONE
  11. SILDENAFIL [Concomitant]
     Active Substance: SILDENAFIL
  12. ELIQUIS [Concomitant]
     Active Substance: APIXABAN
  13. GABAPENTIN [Concomitant]
     Active Substance: GABAPENTIN

REACTIONS (2)
  - Stent placement [Unknown]
  - Therapeutic response decreased [Unknown]

NARRATIVE: CASE EVENT DATE: 20250401
